FAERS Safety Report 18909758 (Version 1)
Quarter: 2021Q1

REPORT INFORMATION
  Report Type: Spontaneous
  Country: US (occurrence: US)
  Receive Date: 20210218
  Receipt Date: 20210218
  Transmission Date: 20210420
  Serious: Yes (Hospitalization)
  Sender: FDA-Public Use
  Company Number: None

PATIENT
  Age: 20 Year
  Sex: Female
  Weight: 68 kg

DRUGS (6)
  1. METHOTREXATE. [Suspect]
     Active Substance: METHOTREXATE
     Dates: end: 20210126
  2. DAUNORUBICIN [Suspect]
     Active Substance: DAUNORUBICIN
     Dates: end: 20210201
  3. CYTARABINE. [Suspect]
     Active Substance: CYTARABINE
     Dates: end: 20210108
  4. DEXAMETHASONE. [Suspect]
     Active Substance: DEXAMETHASONE
     Dates: end: 20210205
  5. VINCRISTINE SULFATE. [Suspect]
     Active Substance: VINCRISTINE SULFATE
     Dates: end: 20210201
  6. ONCASPAR [Suspect]
     Active Substance: PEGASPARGASE
     Dates: end: 20210121

REACTIONS (13)
  - Dyspnoea [None]
  - Paraneoplastic syndrome [None]
  - Abdominal discomfort [None]
  - Asthenia [None]
  - Dysstasia [None]
  - Haemolysis [None]
  - Gait inability [None]
  - Upper motor neurone lesion [None]
  - Musculoskeletal stiffness [None]
  - Meningeal thickening [None]
  - Insomnia [None]
  - Muscular weakness [None]
  - Pachymeningitis [None]

NARRATIVE: CASE EVENT DATE: 20210205
